FAERS Safety Report 12704931 (Version 2)
Quarter: 2017Q1

REPORT INFORMATION
  Report Type: Spontaneous
  Country: US (occurrence: US)
  Receive Date: 20160831
  Receipt Date: 20170103
  Transmission Date: 20170428
  Serious: Yes (Other)
  Sender: FDA-Public Use
  Company Number: US-CELGENEUS-USA-2016085593

PATIENT
  Age: 25 Year
  Sex: Male

DRUGS (3)
  1. OTEZLA [Suspect]
     Active Substance: APREMILAST
     Indication: PSORIASIS
     Dosage: 60 MILLIGRAM?STARTER PACK
     Route: 048
     Dates: start: 20151120, end: 201603
  2. CLOBETASOL [Concomitant]
     Active Substance: CLOBETASOL
     Indication: PSORIASIS
     Route: 061
     Dates: start: 201506
  3. DESONATE [Concomitant]
     Active Substance: DESONIDE
     Indication: PSORIASIS
     Route: 061

REACTIONS (1)
  - Basedow^s disease [Recovered/Resolved with Sequelae]

NARRATIVE: CASE EVENT DATE: 201512
